FAERS Safety Report 6066445-1 (Version None)
Quarter: 2009Q1

REPORT INFORMATION
  Report Type: 
  Country: None (occurrence: None)
  Receive Date: 20090205
  Receipt Date: 20090127
  Transmission Date: 20090719
  Serious: Yes (Hospitalization, Other)
  Sender: FDA-Public Use
  Company Number: US-AVENTIS-200910598US

PATIENT
  Sex: Female
  Weight: 119.55 kg

DRUGS (14)
  1. LANTUS [Suspect]
     Route: 058
     Dates: start: 20050101
  2. OPTICLIK (INSULIN INJECTION PEN) [Suspect]
     Dates: start: 20050101
  3. ASPIRIN [Concomitant]
  4. ASPIRIN [Concomitant]
  5. NEXIUM [Concomitant]
     Dosage: DOSE: UNK
  6. TOPROL-XL [Concomitant]
     Dosage: DOSE: UNK
  7. NEURONTIN [Concomitant]
     Indication: PAIN
     Dosage: DOSE: UNK
  8. DURAGESIC-100 [Concomitant]
     Indication: PAIN
     Dosage: DOSE: UNK
     Route: 061
  9. OXYBUTYNIN CHLORIDE [Concomitant]
     Indication: INCONTINENCE
     Dosage: DOSE: UNK
  10. FLEXERIL [Concomitant]
     Dosage: DOSE: UNK
  11. METFORMIN [Concomitant]
     Dosage: DOSE: UNK
  12. CENTRUM                            /00554501/ [Concomitant]
     Dosage: DOSE: UNK
  13. CRESTOR [Concomitant]
     Dosage: DOSE: UNK
  14. NOVOLOG [Concomitant]
     Route: 058

REACTIONS (6)
  - ARTERIOSCLEROSIS [None]
  - BLOOD GLUCOSE INCREASED [None]
  - CEREBROVASCULAR ACCIDENT [None]
  - CONDITION AGGRAVATED [None]
  - HYPERTENSION [None]
  - MUSCULAR WEAKNESS [None]
